FAERS Safety Report 15572510 (Version 2)
Quarter: 2018Q4

REPORT INFORMATION
  Report Type: Spontaneous
  Country: US (occurrence: US)
  Receive Date: 20181031
  Receipt Date: 20181127
  Transmission Date: 20190205
  Serious: No
  Sender: FDA-Public Use
  Company Number: US-GLAXOSMITHKLINE-US2018192743

PATIENT
  Age: 75 Year
  Sex: Female
  Weight: 60.32 kg

DRUGS (5)
  1. ADVAIR DISKUS [Suspect]
     Active Substance: FLUTICASONE PROPIONATE\SALMETEROL XINAFOATE
     Dosage: UNK UNK, Z
     Route: 055
     Dates: start: 201806
  2. ADVAIR DISKUS [Suspect]
     Active Substance: FLUTICASONE PROPIONATE\SALMETEROL XINAFOATE
     Indication: ASTHMA
     Dosage: UNK
     Route: 055
     Dates: start: 2006
  3. ADVAIR DISKUS [Suspect]
     Active Substance: FLUTICASONE PROPIONATE\SALMETEROL XINAFOATE
     Dosage: UNK UNK, Z
     Route: 055
     Dates: start: 2018
  4. ZANTAC [Suspect]
     Active Substance: RANITIDINE HYDROCHLORIDE
     Indication: ABDOMINAL PAIN UPPER
     Dosage: UNK
  5. ADVAIR DISKUS [Suspect]
     Active Substance: FLUTICASONE PROPIONATE\SALMETEROL XINAFOATE
     Dosage: UNK UNK, Z
     Route: 055
     Dates: start: 201808

REACTIONS (8)
  - Drug ineffective [Unknown]
  - Dyspnoea [Recovering/Resolving]
  - Intentional product misuse [Unknown]
  - Off label use [Unknown]
  - Drug effect delayed [Unknown]
  - Abdominal pain upper [Recovering/Resolving]
  - Chest discomfort [Unknown]
  - Intentional underdose [Unknown]

NARRATIVE: CASE EVENT DATE: 201806
